FAERS Safety Report 11723766 (Version 1)
Quarter: 2015Q4

REPORT INFORMATION
  Report Type: Spontaneous
  Country: FR (occurrence: FR)
  Receive Date: 20151111
  Receipt Date: 20151111
  Transmission Date: 20160304
  Serious: Yes (Death, Hospitalization, Other)
  Sender: FDA-Public Use
  Company Number: FR-ASTRAZENECA-2015SF08251

PATIENT
  Age: 782 Month
  Sex: Male

DRUGS (10)
  1. ALKERAN [Suspect]
     Active Substance: MELPHALAN
     Route: 042
     Dates: start: 20150908, end: 20150908
  2. ACICLOVIR [Suspect]
     Active Substance: ACYCLOVIR
     Route: 048
     Dates: end: 20150923
  3. PRIMPERAN [Suspect]
     Active Substance: METOCLOPRAMIDE HYDROCHLORIDE
     Route: 042
     Dates: start: 20150908, end: 20150908
  4. CEFTRIAXONE. [Suspect]
     Active Substance: CEFTRIAXONE
     Dosage: MYLAN
     Route: 042
     Dates: start: 201509, end: 201509
  5. KARDEGIC [Suspect]
     Active Substance: ASPIRIN LYSINE
     Route: 048
  6. TARGOCID [Suspect]
     Active Substance: TEICOPLANIN
     Route: 042
     Dates: start: 20150914
  7. GRANOCYTE [Suspect]
     Active Substance: LENOGRASTIM
     Route: 042
     Dates: start: 20150914
  8. CIPROFLOXACIN. [Suspect]
     Active Substance: CIPROFLOXACIN
     Dosage: MYLAN
     Route: 042
     Dates: start: 201509, end: 201509
  9. INEXIUM [Suspect]
     Active Substance: ESOMEPRAZOLE
     Route: 048
     Dates: end: 201509
  10. OXYNORM [Suspect]
     Active Substance: OXYCODONE HYDROCHLORIDE
     Route: 048

REACTIONS (12)
  - Oxygen saturation decreased [Fatal]
  - Respiratory failure [Fatal]
  - Cholestasis [Unknown]
  - Renal impairment [Unknown]
  - Lung disorder [Fatal]
  - Pulmonary alveolar haemorrhage [Unknown]
  - Respiratory distress [Unknown]
  - White blood cell count increased [Unknown]
  - Acute pulmonary oedema [Unknown]
  - Pneumothorax [Unknown]
  - Thrombocytopenia [Unknown]
  - Pyrexia [Recovered/Resolved]

NARRATIVE: CASE EVENT DATE: 201509
